FAERS Safety Report 9549288 (Version 1)
Quarter: 2013Q2

REPORT INFORMATION
  Report Type: Spontaneous
  Country: US (occurrence: None)
  Receive Date: 20130627
  Receipt Date: 20130627
  Transmission Date: 20140414
  Serious: No
  Sender: FDA-Public Use
  Company Number: 1000045463

PATIENT
  Age: 70 Year
  Sex: Female

DRUGS (3)
  1. LINZESS [Suspect]
     Indication: CONSTIPATION
     Dosage: 145 MCG (145 MCG, 1 IN 1 D), ORAL
     Route: 048
     Dates: start: 201304
  2. LAMICTAL (LAMOTRIGINE) (LAMOTRIGINE) [Concomitant]
  3. VIIBRYD (VILAZODONE) (VILAZODONE) [Concomitant]

REACTIONS (1)
  - Diarrhoea [None]
